FAERS Safety Report 17187009 (Version 2)
Quarter: 2020Q1

REPORT INFORMATION
  Report Type: Spontaneous
  Country: US (occurrence: US)
  Receive Date: 20191220
  Receipt Date: 20200209
  Transmission Date: 20200409
  Serious: No
  Sender: FDA-Public Use
  Company Number: US-TEVA-2019-US-1154699

PATIENT

DRUGS (20)
  1. CRESTOR [Concomitant]
     Active Substance: ROSUVASTATIN CALCIUM
     Dosage: 20 MILLIGRAM DAILY; AM
     Dates: end: 20200117
  2. SILVER SHIELD [Concomitant]
     Dosage: 1 TBSP
  3. VISIBILI-T [Concomitant]
  4. PROVACOL [Concomitant]
     Dosage: 40 MILLIGRAM DAILY; PM
     Dates: end: 20200117
  5. VITAMIN C [Concomitant]
     Active Substance: ASCORBIC ACID
  6. RELIEF [Concomitant]
     Active Substance: WITCH HAZEL
     Dosage: NOBS
  7. BENEFIBER [Concomitant]
     Active Substance: STARCH, WHEAT
     Dosage: 2 TSP
  8. ALLEGRA [Concomitant]
     Active Substance: FEXOFENADINE HYDROCHLORIDE
     Dosage: 180 MILLIGRAM DAILY; AM
  9. NASACORT [Concomitant]
     Active Substance: TRIAMCINOLONE ACETONIDE
     Dosage: DAILY
  10. VITAMIN D3 [Concomitant]
     Active Substance: CHOLECALCIFEROL
  11. ZINC. [Concomitant]
     Active Substance: ZINC
  12. PRAVASTATIN SODIUM TEVA [Suspect]
     Active Substance: PRAVASTATIN SODIUM
     Indication: BLOOD CHOLESTEROL INCREASED
     Route: 065
     Dates: start: 201905, end: 20200117
  13. HYDROCHOLOROTHIAZIDE [Concomitant]
     Active Substance: HYDROCHLOROTHIAZIDE
     Dosage: 25 MILLIGRAM DAILY; AM
  14. NATURES SUNSHINE PRODUCT [Concomitant]
  15. ASTRAGULUS [Concomitant]
     Dosage: DROPPER DAILY
  16. ATENOLOL. [Concomitant]
     Active Substance: ATENOLOL
     Dosage: 50 MILLIGRAM DAILY; AM
  17. CARDURA [Concomitant]
     Active Substance: DOXAZOSIN MESYLATE
     Dosage: 1 MILLIGRAM DAILY; AM
  18. EHB [Concomitant]
  19. VITAMIN A [Concomitant]
     Active Substance: VITAMIN A
  20. VITAMIN B6 [Concomitant]
     Active Substance: PYRIDOXINE HYDROCHLORIDE

REACTIONS (3)
  - Product size issue [Unknown]
  - Memory impairment [Not Recovered/Not Resolved]
  - Amnesia [Not Recovered/Not Resolved]
